FAERS Safety Report 8150572-9 (Version None)
Quarter: 2012Q1

REPORT INFORMATION
  Report Type: 
  Country: None (occurrence: None)
  Receive Date: 20120220
  Receipt Date: 20120214
  Transmission Date: 20120608
  Serious: Yes (Death, Hospitalization)
  Sender: FDA-Public Use
  Company Number: FR-ASTELLAS-2012US001842

PATIENT
  Age: 69 Year
  Sex: Male

DRUGS (3)
  1. NSAID'S [Concomitant]
     Indication: PRODUCT USED FOR UNKNOWN INDICATION
     Dosage: UNK
     Route: 065
  2. DOXYCYCLINE [Suspect]
     Indication: METASTATIC SQUAMOUS CELL CARCINOMA
     Dosage: UNK
     Route: 065
     Dates: start: 20101122, end: 20101209
  3. TARCEVA [Suspect]
     Indication: METASTATIC SQUAMOUS CELL CARCINOMA
     Dosage: UNK
     Route: 048
     Dates: start: 20101122, end: 20101202

REACTIONS (5)
  - INFECTIOUS PERITONITIS [None]
  - GASTROINTESTINAL PERFORATION [None]
  - MULTI-ORGAN FAILURE [None]
  - CYTOLYTIC HEPATITIS [None]
  - CHOLESTASIS [None]
